FAERS Safety Report 8224335-X (Version None)
Quarter: 2012Q1

REPORT INFORMATION
  Report Type: 
  Country: None (occurrence: None)
  Receive Date: 20120321
  Receipt Date: 20110222
  Transmission Date: 20120608
  Serious: No
  Sender: FDA-Public Use
  Company Number: US-MYLANLABS-2011S1003194

PATIENT
  Age: 75 Year
  Sex: Male

DRUGS (6)
  1. METOPROLOL TARTRATE [Suspect]
     Indication: ATRIAL FIBRILLATION
     Dates: start: 20110101
  2. ALTACE [Concomitant]
  3. SOTALOL HYDROCHLORIDE [Suspect]
     Indication: ATRIAL FIBRILLATION
     Dates: start: 20030101, end: 20110109
  4. WARFARIN SODIUM [Concomitant]
     Indication: ANTICOAGULANT THERAPY
  5. FISH OIL [Concomitant]
  6. RAMIPRIL [Concomitant]
     Dosage: ALSO TAKES 2.5MG EVERY EVENING
     Route: 048

REACTIONS (5)
  - FATIGUE [None]
  - BRADYCARDIA [None]
  - SINUS ARRHYTHMIA [None]
  - LIBIDO DECREASED [None]
  - PERIPHERAL COLDNESS [None]
